FAERS Safety Report 16628781 (Version 2)
Quarter: 2019Q3

REPORT INFORMATION
  Report Type: Spontaneous
  Country: US (occurrence: US)
  Receive Date: 20190725
  Receipt Date: 20190729
  Transmission Date: 20191004
  Serious: No
  Sender: FDA-Public Use
  Company Number: US-PFIZER INC-2019317595

PATIENT
  Age: 52 Year
  Sex: Male
  Weight: 81.65 kg

DRUGS (2)
  1. VIAGRA [Suspect]
     Active Substance: SILDENAFIL CITRATE
     Indication: ERECTILE DYSFUNCTION
     Dosage: 200 MG, [LAST NIGHT I TOOK TWO 100 MG]
  2. VIAGRA [Suspect]
     Active Substance: SILDENAFIL CITRATE
     Dosage: 100 MG, AS NEEDED
     Route: 048

REACTIONS (2)
  - Therapeutic product effect incomplete [Unknown]
  - Overdose [Unknown]
